FAERS Safety Report 15290641 (Version 1)
Quarter: 2018Q4

REPORT INFORMATION
  Report Type: Spontaneous
  Country: ES (occurrence: ES)
  Receive Date: 20180817
  Receipt Date: 20180817
  Transmission Date: 20190204
  Serious: Yes (Hospitalization)
  Sender: FDA-Public Use
  Company Number: ES-TEVA-2018-ES-942775

PATIENT
  Age: 82 Year
  Sex: Female

DRUGS (1)
  1. LOSARTAN/HIDROCLOROTIAZIDA 100 MG/25 MG [Suspect]
     Active Substance: HYDROCHLOROTHIAZIDE\LOSARTAN
     Indication: HYPERTENSION
     Dosage: 1 DOSAGE FORMS DAILY; 1 MORNING TABLET
     Route: 048
     Dates: start: 20110101, end: 20180703

REACTIONS (1)
  - Syncope [Recovered/Resolved]

NARRATIVE: CASE EVENT DATE: 20180617
